FAERS Safety Report 5879474-5 (Version None)
Quarter: 2008Q3

REPORT INFORMATION
  Report Type: 
  Country: None (occurrence: None)
  Receive Date: 20080912
  Receipt Date: 20080909
  Transmission Date: 20090109
  Serious: Yes (Death, Hospitalization)
  Sender: FDA-Public Use
  Company Number: US-ASTRAZENECA-2008AC02437

PATIENT
  Age: 67 Year
  Sex: Female

DRUGS (3)
  1. PROPOFOL [Suspect]
     Indication: SEDATION
     Route: 042
  2. FENTANYL [Concomitant]
     Indication: SEDATION
     Route: 042
  3. MIDAZOLAM HCL [Concomitant]
     Indication: SEDATION
     Route: 042

REACTIONS (3)
  - BRADYCARDIA [None]
  - HYPOTENSION [None]
  - MEDICATION ERROR [None]
